FAERS Safety Report 24689478 (Version 1)
Quarter: 2024Q4

REPORT INFORMATION
  Report Type: Report from Study
  Country: SE (occurrence: SE)
  Receive Date: 20241203
  Receipt Date: 20241203
  Transmission Date: 20250115
  Serious: Yes (Other)
  Sender: AUROBINDO
  Company Number: SE-ORIFARM-032394

PATIENT
  Age: 51 Year
  Sex: Female

DRUGS (2)
  1. SERTRALINE [Suspect]
     Active Substance: SERTRALINE HYDROCHLORIDE
     Indication: Depression
     Dosage: UNK (THE DOSAGE OF SERTRALINE AT THE TIME OF DIAGNOSIS RANGED FROM 100 TO 200 MG)
     Route: 065
  2. SERTRALINE [Suspect]
     Active Substance: SERTRALINE HYDROCHLORIDE
     Indication: Anxiety disorder

REACTIONS (1)
  - Multiple acyl-coenzyme A dehydrogenase deficiency [Unknown]
